FAERS Safety Report 18243233 (Version 3)
Quarter: 2020Q4

REPORT INFORMATION
  Report Type: Spontaneous
  Country: AT (occurrence: AT)
  Receive Date: 20200908
  Receipt Date: 20201006
  Transmission Date: 20210113
  Serious: Yes (Hospitalization)
  Sender: FDA-Public Use
  Company Number: AT-UCBSA-2020035132

PATIENT
  Age: 55 Year
  Sex: Male

DRUGS (6)
  1. ATARAX [Suspect]
     Active Substance: HYDROXYZINE HYDROCHLORIDE
     Indication: PRURITUS
     Dosage: 25 MILLIGRAM, UNK
  2. XYZALL [Suspect]
     Active Substance: LEVOCETIRIZINE DIHYDROCHLORIDE
     Indication: OFF LABEL USE
  3. EFFECTIN [BITOLTEROL MESILATE] [Concomitant]
     Indication: PRODUCT USED FOR UNKNOWN INDICATION
  4. XYZALL [Suspect]
     Active Substance: LEVOCETIRIZINE DIHYDROCHLORIDE
     Indication: PRURITUS
     Dosage: 5 MILLIGRAM, UNK
  5. SULFAPYRIDINE. [Concomitant]
     Active Substance: SULFAPYRIDINE
     Indication: PRODUCT USED FOR UNKNOWN INDICATION
  6. LYRICA [Concomitant]
     Active Substance: PREGABALIN
     Indication: PRODUCT USED FOR UNKNOWN INDICATION

REACTIONS (3)
  - Psoriasis [Not Recovered/Not Resolved]
  - Off label use [Unknown]
  - Skin irritation [Unknown]
